FAERS Safety Report 9058269 (Version 1)
Quarter: 2013Q1

REPORT INFORMATION
  Report Type: Spontaneous
  Country: US (occurrence: None)
  Receive Date: 20130204
  Receipt Date: 20130204
  Transmission Date: 20140127
  Serious: Yes (Other)
  Sender: FDA-Public Use
  Company Number: None

PATIENT
  Age: 71 Year
  Sex: Female

DRUGS (4)
  1. RIFAMPIN 300MG LANNETT [Suspect]
     Indication: INFECTION
     Dosage: 10-18-12 - PRESENT
     Route: 048
     Dates: start: 20121018
  2. PROPAFENONE SR 325 MG [Suspect]
     Indication: ARRHYTHMIA
     Dosage: 27-FEB-2012 - PRESENT
     Route: 048
     Dates: start: 20120227
  3. AZITHROMYCIN 500 MG [Concomitant]
  4. ETHAMBUTAL 400 MG [Concomitant]

REACTIONS (2)
  - Arrhythmia [None]
  - Condition aggravated [None]
